FAERS Safety Report 11201060 (Version 1)
Quarter: 2015Q2

REPORT INFORMATION
  Report Type: Spontaneous
  Country: DE (occurrence: DE)
  Receive Date: 20150619
  Receipt Date: 20150619
  Transmission Date: 20150821
  Serious: Yes (Hospitalization)
  Sender: FDA-Public Use
  Company Number: DE-ASTRAZENECA-2015SE59963

PATIENT
  Age: 79 Year
  Sex: Male

DRUGS (3)
  1. ENTOCORT [Suspect]
     Active Substance: BUDESONIDE
     Indication: DIARRHOEA
     Route: 048
  2. BLOOD PRESSURE MEDICATION [Concomitant]
     Active Substance: UNSPECIFIED INGREDIENT
  3. ENTOCORT [Suspect]
     Active Substance: BUDESONIDE
     Indication: DIARRHOEA
     Route: 048

REACTIONS (1)
  - Hypertensive crisis [Unknown]
